FAERS Safety Report 18806127 (Version 1)
Quarter: 2021Q1

REPORT INFORMATION
  Report Type: Report from Study
  Country: US (occurrence: US)
  Receive Date: 20210128
  Receipt Date: 20210128
  Transmission Date: 20210419
  Serious: No
  Sender: FDA-Public Use
  Company Number: US-INCYTE CORPORATION-2020IN012798

PATIENT

DRUGS (1)
  1. JAKAFI [Suspect]
     Active Substance: RUXOLITINIB
     Indication: MYELOFIBROSIS
     Dosage: 25 MILLIGRAM
     Route: 048
     Dates: start: 2013

REACTIONS (6)
  - Dyspnoea [Unknown]
  - Therapeutic response unexpected [Unknown]
  - Haemoglobin decreased [Unknown]
  - Decreased activity [Unknown]
  - Fatigue [Unknown]
  - White blood cell count increased [Unknown]
